FAERS Safety Report 4564972-7 (Version None)
Quarter: 2005Q1

REPORT INFORMATION
  Report Type: 
  Country: None (occurrence: None)
  Receive Date: 20050131
  Receipt Date: 20050120
  Transmission Date: 20050727
  Serious: Yes (Other)
  Sender: FDA-Public Use
  Company Number: CA-JNJFOC-20041004239

PATIENT
  Age: 49 Year
  Sex: Female

DRUGS (11)
  1. TYLENOL W/ CODEINE NO. 3 [Suspect]
     Indication: DRUG USE FOR UNKNOWN INDICATION
     Route: 049
  2. LIPITOR [Concomitant]
  3. INSULIN [Concomitant]
  4. AVANDIA [Concomitant]
  5. IRON SUPPLEMENT [Concomitant]
  6. CALCIUM SUPPLEMENT [Concomitant]
  7. FIBRE SUPPLEMENT [Concomitant]
  8. COVERCIL [Concomitant]
  9. INDAPAMIDE [Concomitant]
  10. PLAVIX [Concomitant]
  11. DIXARIT [Concomitant]

REACTIONS (3)
  - DRUG INEFFECTIVE [None]
  - HEPATOCELLULAR DAMAGE [None]
  - LIVER FUNCTION TEST ABNORMAL [None]
